FAERS Safety Report 9202117 (Version 3)
Quarter: 2013Q2

REPORT INFORMATION
  Report Type: Spontaneous
  Country: US (occurrence: US)
  Receive Date: 20130401
  Receipt Date: 20130429
  Transmission Date: 20140414
  Serious: Yes (Other)
  Sender: FDA-Public Use
  Company Number: US-ABBOTT-13P-163-1067862-00

PATIENT
  Sex: Female

DRUGS (1)
  1. SYNTHROID [Suspect]
     Indication: PRODUCT USED FOR UNKNOWN INDICATION

REACTIONS (7)
  - Adrenal insufficiency [Unknown]
  - Anxiety [Recovered/Resolved]
  - Blood thyroid stimulating hormone abnormal [Unknown]
  - Fatigue [Unknown]
  - Weight increased [Unknown]
  - Activities of daily living impaired [Unknown]
  - Alopecia [Unknown]
